FAERS Safety Report 5981895-7 (Version None)
Quarter: 2008Q4

REPORT INFORMATION
  Report Type: 
  Country: None (occurrence: None)
  Receive Date: 20081205
  Receipt Date: 20081203
  Transmission Date: 20090506
  Serious: Yes (Death, Hospitalization)
  Sender: FDA-Public Use
  Company Number: FR-MERCK-0812FRA00014

PATIENT
  Age: 66 Year
  Sex: Female

DRUGS (9)
  1. PRIMAXIN [Suspect]
     Indication: URINARY TRACT INFECTION
     Route: 041
     Dates: start: 20080910, end: 20080912
  2. FLUCONAZOLE [Suspect]
     Route: 041
     Dates: start: 20080901, end: 20080901
  3. FLUCONAZOLE [Suspect]
     Route: 048
     Dates: start: 20080918, end: 20080922
  4. PEMETREXED DISODIUM [Suspect]
     Indication: LUNG ADENOCARCINOMA
     Route: 048
     Dates: start: 20080902, end: 20080902
  5. ONDANSETRON HYDROCHLORIDE [Suspect]
     Indication: PROPHYLAXIS OF NAUSEA AND VOMITING
     Route: 042
     Dates: start: 20080902, end: 20080918
  6. METOCLOPRAMIDE HYDROCHLORIDE [Suspect]
     Indication: PROPHYLAXIS OF NAUSEA AND VOMITING
     Route: 042
     Dates: start: 20080910, end: 20080917
  7. FLUCONAZOLE [Concomitant]
     Indication: FUNGAL INFECTION
     Route: 048
     Dates: start: 20080910
  8. AMLODIPINE BESYLATE [Concomitant]
     Indication: HYPERTENSION
     Route: 048
     Dates: start: 19880101
  9. SPIRONOLACTONE [Concomitant]
     Indication: HYPERTENSION
     Route: 048
     Dates: start: 19880101

REACTIONS (3)
  - DRUG ERUPTION [None]
  - RENAL FAILURE ACUTE [None]
  - STEVENS-JOHNSON SYNDROME [None]
